FAERS Safety Report 9165539 (Version 1)
Quarter: 2013Q1

REPORT INFORMATION
  Report Type: Spontaneous
  Country: IR (occurrence: None)
  Receive Date: 20130212
  Receipt Date: 20130212
  Transmission Date: 20140127
  Serious: No
  Sender: FDA-Public Use
  Company Number: 0235245

PATIENT
  Age: 60 Year
  Sex: Female

DRUGS (1)
  1. TACHOSIL [Suspect]

REACTIONS (2)
  - Fistula [None]
  - Application site reaction [None]
